FAERS Safety Report 9283045 (Version 1)
Quarter: 2013Q2

REPORT INFORMATION
  Report Type: Spontaneous
  Country: US (occurrence: US)
  Receive Date: 20130510
  Receipt Date: 20130510
  Transmission Date: 20140414
  Serious: No
  Sender: FDA-Public Use
  Company Number: US-GLAXOSMITHKLINE-A0975184A

PATIENT
  Age: 51 Year
  Sex: Female
  Weight: 74.1 kg

DRUGS (4)
  1. TYKERB [Suspect]
     Indication: PRODUCT USED FOR UNKNOWN INDICATION
     Dosage: 250MG PER DAY
     Route: 048
  2. TAMOXIFEN [Concomitant]
  3. MYLANTA DS [Concomitant]
  4. PROBIOTIC [Concomitant]

REACTIONS (3)
  - Rash pruritic [Unknown]
  - Nausea [Unknown]
  - Vomiting [Unknown]
